FAERS Safety Report 4449242-X (Version None)
Quarter: 2004Q3

REPORT INFORMATION
  Report Type: 
  Country: None (occurrence: None)
  Receive Date: 20040913
  Receipt Date: 20040827
  Transmission Date: 20050211
  Serious: Yes (Other)
  Sender: FDA-Public Use
  Company Number: P2004000010

PATIENT
  Age: 77 Year
  Sex: Male
  Weight: 61.2 kg

DRUGS (5)
  1. PLENAXIS [Suspect]
     Indication: PROSTATE CANCER METASTATIC
     Dosage: SEE IMAGE
     Route: 030
     Dates: start: 20040623, end: 20040623
  2. PLENAXIS [Suspect]
     Indication: PROSTATE CANCER METASTATIC
     Dosage: SEE IMAGE
     Route: 030
     Dates: start: 20040708, end: 20040708
  3. PLENAXIS [Suspect]
     Indication: PROSTATE CANCER METASTATIC
     Dosage: SEE IMAGE
     Route: 030
     Dates: start: 20040722, end: 20040722
  4. PLENAXIS [Suspect]
     Indication: PROSTATE CANCER METASTATIC
     Dosage: SEE IMAGE
     Route: 030
     Dates: start: 20040826, end: 20040826
  5. CASODEX [Concomitant]

REACTIONS (4)
  - BLOOD PRESSURE DECREASED [None]
  - EYE SWELLING [None]
  - FLUSHING [None]
  - URTICARIA [None]
